FAERS Safety Report 6851154-9 (Version None)
Quarter: 2010Q3

REPORT INFORMATION
  Report Type: 
  Country: None (occurrence: None)
  Receive Date: 20100716
  Receipt Date: 20080116
  Transmission Date: 20110219
  Serious: No
  Sender: FDA-Public Use
  Company Number: US-PFIZER INC-2007090812

PATIENT
  Sex: Female
  Weight: 57.61 kg

DRUGS (1)
  1. CHANTIX [Suspect]
     Indication: TOBACCO USER
     Dates: start: 20070801, end: 20070901

REACTIONS (4)
  - DEPRESSION [None]
  - FATIGUE [None]
  - HYPOAESTHESIA ORAL [None]
  - WEIGHT DECREASED [None]
